FAERS Safety Report 6932475-8 (Version None)
Quarter: 2010Q3

REPORT INFORMATION
  Report Type: 
  Country: None (occurrence: None)
  Receive Date: 20100819
  Receipt Date: 20100812
  Transmission Date: 20110219
  Serious: Yes (Other)
  Sender: FDA-Public Use
  Company Number: US-MERCK-1008USA01339

PATIENT
  Sex: Female

DRUGS (3)
  1. VYTORIN [Suspect]
     Route: 048
  2. AMIODARONA [Suspect]
     Route: 065
  3. WARFARIN [Suspect]
     Route: 065

REACTIONS (1)
  - CARDIAC FAILURE [None]
